FAERS Safety Report 23471999 (Version 1)
Quarter: 2024Q1

REPORT INFORMATION
  Report Type: Spontaneous
  Country: FR (occurrence: None)
  Receive Date: 20240202
  Receipt Date: 20240202
  Transmission Date: 20240409
  Serious: Yes (Death)
  Sender: FDA-Public Use
  Company Number: 2024A026358

PATIENT
  Age: 76 Year
  Sex: Male
  Weight: 65 kg

DRUGS (14)
  1. IMFINZI [Suspect]
     Active Substance: DURVALUMAB
     Indication: Cholangiocarcinoma
     Dosage: C1J11500.0MG ONCE/SINGLE ADMINISTRATION
     Route: 040
     Dates: start: 20231218, end: 20231218
  2. GEMCITABINE [Suspect]
     Active Substance: GEMCITABINE
     Indication: Cholangiocarcinoma
     Dosage: C1J11800.0MG ONCE/SINGLE ADMINISTRATION
     Route: 040
     Dates: start: 20231218, end: 20231218
  3. GEMCITABINE [Suspect]
     Active Substance: GEMCITABINE
     Indication: Cholangiocarcinoma
     Dosage: C1J81800.0MG ONCE/SINGLE ADMINISTRATION
     Route: 040
     Dates: start: 20231226, end: 20231226
  4. CARBOPLATIN [Suspect]
     Active Substance: CARBOPLATIN
     Indication: Cholangiocarcinoma
     Dosage: C1J81.0DF ONCE/SINGLE ADMINISTRATION
     Route: 040
     Dates: start: 20231226, end: 20231226
  5. CARBOPLATIN [Suspect]
     Active Substance: CARBOPLATIN
     Indication: Cholangiocarcinoma
     Dosage: C1J11.0DF ONCE/SINGLE ADMINISTRATION
     Route: 040
     Dates: start: 20231218, end: 20231218
  6. FEBUXOSTAT [Concomitant]
     Active Substance: FEBUXOSTAT
  7. APREPITANT [Concomitant]
     Active Substance: APREPITANT
  8. KARDEGIC 75 MG, POUDRE POUR [Concomitant]
     Dosage: 75.0MG UNKNOWN
  9. OXYCONTIN LP 30 MG, COMPRIM? PELLICUL? ? LIB?RATION PROLONG?E [Concomitant]
     Dosage: 60.0MG UNKNOWN
  10. LISINOPRIL [Concomitant]
     Active Substance: LISINOPRIL
     Dosage: 10.0MG UNKNOWN
  11. ATORVASTATIN [Concomitant]
     Active Substance: ATORVASTATIN
     Dosage: 10.0MG UNKNOWN
  12. OXYCODONE HYDROCHLORIDE [Concomitant]
     Active Substance: OXYCODONE HYDROCHLORIDE
     Dosage: 10.0MG UNKNOWN
  13. FUROSEMIDE [Concomitant]
     Active Substance: FUROSEMIDE
     Dosage: 40.0MG UNKNOWN
  14. CARVEDILOL [Concomitant]
     Active Substance: CARVEDILOL
     Dosage: 25.0MG UNKNOWN

REACTIONS (2)
  - Agranulocytosis [Fatal]
  - Colitis [Fatal]

NARRATIVE: CASE EVENT DATE: 20231229
